FAERS Safety Report 4382214-2 (Version None)
Quarter: 2004Q2

REPORT INFORMATION
  Report Type: 
  Country: None (occurrence: None)
  Receive Date: 20040618
  Receipt Date: 20040618
  Transmission Date: 20050107
  Serious: Yes (Life-Threatening)
  Sender: FDA-Public Use
  Company Number: None

PATIENT
  Age: 73 Year
  Sex: Male
  Weight: 99 kg

DRUGS (1)
  1. NATRECOR [Suspect]
     Indication: CARDIAC FAILURE CONGESTIVE
     Dosage: 2MCG/KG BOLUS + 0.01 MCG/KG/MIN INFUSION
     Route: 040

REACTIONS (3)
  - ELECTROMECHANICAL DISSOCIATION [None]
  - FEELING ABNORMAL [None]
  - VENTRICULAR TACHYCARDIA [None]
